FAERS Safety Report 6997495-6 (Version None)
Quarter: 2010Q3

REPORT INFORMATION
  Report Type: 
  Country: None (occurrence: None)
  Receive Date: 20100918
  Receipt Date: 20091015
  Transmission Date: 20110219
  Serious: No
  Sender: FDA-Public Use
  Company Number: US-WYE-H11709109

PATIENT
  Age: 65 Year
  Sex: Female
  Weight: 72.64 kg

DRUGS (2)
  1. ADVIL PM [Suspect]
     Indication: INSOMNIA
     Dosage: 2 CAPLETS ONCE AT 9PM
     Route: 048
     Dates: start: 20091012, end: 20091012
  2. VITAMINS [Concomitant]

REACTIONS (3)
  - DRUG INEFFECTIVE [None]
  - FEAR [None]
  - NIGHTMARE [None]
